FAERS Safety Report 18820087 (Version 1)
Quarter: 2021Q1

REPORT INFORMATION
  Report Type: Spontaneous
  Country: SE (occurrence: SE)
  Receive Date: 20210202
  Receipt Date: 20210202
  Transmission Date: 20210419
  Serious: Yes (Hospitalization)
  Sender: FDA-Public Use
  Company Number: SE-TEVA-2021-SE-1874218

PATIENT
  Age: 55 Year
  Sex: Female

DRUGS (3)
  1. HUMIRA [Suspect]
     Active Substance: ADALIMUMAB
     Indication: SPONDYLOARTHROPATHY
     Dosage: 40 MG
     Dates: start: 20150813, end: 20200223
  2. XELJANZ [Suspect]
     Active Substance: TOFACITINIB CITRATE
     Indication: SPONDYLOARTHROPATHY
     Dosage: 5 MG
     Dates: start: 20191126, end: 20200223
  3. PREDNISOLONE. [Suspect]
     Active Substance: PREDNISOLONE
     Indication: SPONDYLOARTHROPATHY
     Dosage: 10 MG
     Dates: start: 20090316

REACTIONS (1)
  - Sepsis [Recovered/Resolved]

NARRATIVE: CASE EVENT DATE: 20200223
